FAERS Safety Report 10356504 (Version 2)
Quarter: 2014Q3

REPORT INFORMATION
  Report Type: Spontaneous
  Country: US (occurrence: US)
  Receive Date: 20140801
  Receipt Date: 20140904
  Transmission Date: 20150326
  Serious: No
  Sender: FDA-Public Use
  Company Number: US-PFIZER INC-2014210830

PATIENT
  Age: 10 Year
  Sex: Female

DRUGS (1)
  1. GENOTROPIN MQ [Suspect]
     Active Substance: SOMATROPIN
     Indication: DWARFISM
     Dosage: 2 MG, CYCLIC (6 DAYS A WEEK)
     Route: 058

REACTIONS (3)
  - Cognitive disorder [Unknown]
  - Fatigue [Unknown]
  - Hunger [Unknown]
